FAERS Safety Report 5649373-2 (Version None)
Quarter: 2008Q1

REPORT INFORMATION
  Report Type: 
  Country: None (occurrence: None)
  Receive Date: 20080304
  Receipt Date: 20080122
  Transmission Date: 20080703
  Serious: No
  Sender: FDA-Public Use
  Company Number: US-BAYER-200812182NA

PATIENT
  Age: 35 Year
  Sex: Male

DRUGS (2)
  1. ULTRAVIST 300 PHARMACY BULK PACKAGE [Suspect]
     Indication: COMPUTERISED TOMOGRAM
     Route: 042
     Dates: start: 20071227, end: 20071227
  2. ORAL CONTRAST MEDIA [Concomitant]
     Route: 048
     Dates: start: 20071227, end: 20071227

REACTIONS (3)
  - ERYTHEMA [None]
  - PRURITUS [None]
  - SNEEZING [None]
